FAERS Safety Report 7918451 (Version 3)
Quarter: 2012Q4

REPORT INFORMATION
  Report Type: 
  Country: US (occurrence: US)
  Receive Date: 20110428
  Receipt Date: 20121203
  Transmission Date: 20130627
  Serious: No
  Sender: FDA-Public Use
  Company Number: US-ASTRAZENECA-2009UW06559

PATIENT
  Age: 47 Year
  Sex: Female
  Weight: 56.7 kg

DRUGS (7)
  1. ZOMIG [Suspect]
     Indication: MIGRAINE
     Route: 048
  2. ZOMIG [Suspect]
     Indication: MIGRAINE
     Route: 048
  3. ZOMIG [Suspect]
     Indication: MIGRAINE
     Dosage: 1 tablet at onset, may repeat 1 tablet in 2 hours. Maximum of 2 tablets in 24 hours
     Route: 048
     Dates: start: 1997
  4. SYNTHROID [Concomitant]
     Indication: HYPOTHYROIDISM
  5. CELEXA [Concomitant]
     Indication: MIGRAINE PROPHYLAXIS
  6. AUGMENTIN [Concomitant]
     Indication: SINUSITIS
  7. ALDACTONE [Concomitant]

REACTIONS (4)
  - Migraine [Unknown]
  - Migraine [Unknown]
  - Laryngitis [Unknown]
  - Drug dose omission [Unknown]
